FAERS Safety Report 12832675 (Version 3)
Quarter: 2016Q4

REPORT INFORMATION
  Report Type: Report from Study
  Country: US (occurrence: US)
  Receive Date: 20161010
  Receipt Date: 20161018
  Transmission Date: 20170207
  Serious: Yes (Hospitalization)
  Sender: FDA-Public Use
  Company Number: PHEH2016US025634

PATIENT
  Sex: Female
  Weight: 52 kg

DRUGS (1)
  1. EXJADE [Suspect]
     Active Substance: DEFERASIROX
     Indication: B-CELL LYMPHOMA
     Route: 065

REACTIONS (3)
  - Sepsis [Unknown]
  - Immunodeficiency [Unknown]
  - General physical health deterioration [Unknown]
